FAERS Safety Report 9796729 (Version 1)
Quarter: 2014Q1

REPORT INFORMATION
  Report Type: Spontaneous
  Country: DK (occurrence: GB)
  Receive Date: 20140103
  Receipt Date: 20140103
  Transmission Date: 20141002
  Serious: Yes (Hospitalization)
  Sender: FDA-Public Use
  Company Number: GB-FRI-1000052630

PATIENT
  Age: 59 Year
  Sex: Female

DRUGS (6)
  1. CITALOPRAM [Suspect]
     Route: 048
     Dates: end: 201309
  2. CITALOPRAM [Suspect]
     Route: 048
     Dates: start: 201310
  3. ZAPONEX [Suspect]
     Route: 048
     Dates: start: 20100831, end: 201309
  4. ZAPONEX [Suspect]
     Dates: start: 201310
  5. DENZAPINE [Suspect]
     Dates: start: 20050221, end: 20100830
  6. CLARITHROMYCIN [Concomitant]
     Dates: end: 201309

REACTIONS (7)
  - Electrocardiogram QT prolonged [Recovered/Resolved]
  - Respiratory failure [Unknown]
  - Pneumonia [Unknown]
  - Neutrophil count increased [Recovered/Resolved]
  - White blood cell count increased [Recovered/Resolved]
  - Chronic obstructive pulmonary disease [Unknown]
  - Pickwickian syndrome [Not Recovered/Not Resolved]
